FAERS Safety Report 5390718-9 (Version None)
Quarter: 2007Q3

REPORT INFORMATION
  Report Type: 
  Country: None (occurrence: None)
  Receive Date: 20070716
  Receipt Date: 20060511
  Transmission Date: 20080115
  Serious: Yes (Other)
  Sender: FDA-Public Use
  Company Number: MPS1-10529

PATIENT
  Age: 6 Year
  Sex: Male
  Weight: 16.5 kg

DRUGS (3)
  1. LARONIDASE [Suspect]
     Indication: MUCOPOLYSACCHARIDOSIS I
     Dosage: 1500 UNITS QWK; IV
     Route: 042
  2. LARONIDASE [Suspect]
     Indication: MUCOPOLYSACCHARIDOSIS I
     Dosage: 100 U/KG QWK; IV
     Route: 042
     Dates: start: 20031022, end: 20041014
  3. PRE-MEDICATION [Concomitant]

REACTIONS (3)
  - ERYTHEMA [None]
  - HYPERSENSITIVITY [None]
  - HYPERTENSION [None]
